FAERS Safety Report 11999518 (Version 2)
Quarter: 2016Q1

REPORT INFORMATION
  Report Type: Spontaneous
  Country: US (occurrence: None)
  Receive Date: 20160126
  Receipt Date: 20160218
  Transmission Date: 20160526
  Serious: Yes (Other)
  Sender: FDA-Public Use
  Company Number: M2016-002

PATIENT
  Age: 19 Year
  Sex: Female

DRUGS (2)
  1. VIAL ^B^, VARIOUS [Suspect]
     Active Substance: ALLERGENIC EXTRACTS
     Indication: ALLERGY TEST
     Dates: start: 20160111
  2. VIAL ^A^, VARIOUS [Suspect]
     Active Substance: ALLERGENIC EXTRACTS
     Indication: ALLERGY TEST
     Dates: start: 20160111

REACTIONS (4)
  - Blood pressure increased [None]
  - Urticaria [None]
  - Laryngeal oedema [None]
  - Wheezing [None]

NARRATIVE: CASE EVENT DATE: 20160111
